FAERS Safety Report 8064048-0 (Version None)
Quarter: 2012Q1

REPORT INFORMATION
  Report Type: 
  Country: None (occurrence: None)
  Receive Date: 20120123
  Receipt Date: 20120119
  Transmission Date: 20120608
  Serious: Yes (Death)
  Sender: FDA-Public Use
  Company Number: UG-ABBOTT-12P-165-0894924-00

PATIENT
  Age: 42 Year
  Sex: Male

DRUGS (2)
  1. RALTEGRAVIR [Concomitant]
     Indication: HIV INFECTION
     Route: 048
     Dates: start: 20110420, end: 20120115
  2. LOPINAVIR/RITONAVIR [Suspect]
     Indication: HIV INFECTION
     Route: 048
     Dates: start: 20110420, end: 20120115

REACTIONS (1)
  - HEADACHE [None]
